FAERS Safety Report 12252742 (Version 1)
Quarter: 2016Q2

REPORT INFORMATION
  Report Type: Spontaneous
  Country: US (occurrence: None)
  Receive Date: 20160408
  Receipt Date: 20160408
  Transmission Date: 20160815
  Serious: No
  Sender: FDA-Public Use
  Company Number: None

PATIENT
  Sex: Female

DRUGS (1)
  1. GLIMEPIRIDE. [Suspect]
     Active Substance: GLIMEPIRIDE

REACTIONS (4)
  - Arthropathy [None]
  - Musculoskeletal disorder [None]
  - Surgery [None]
  - Bursitis [None]
